FAERS Safety Report 5250135-9 (Version None)
Quarter: 2007Q1

REPORT INFORMATION
  Report Type: 
  Country: None (occurrence: None)
  Receive Date: 20070228
  Receipt Date: 20060403
  Transmission Date: 20070707
  Serious: No
  Sender: FDA-Public Use
  Company Number: US-GLAXOSMITHKLINE-A0593264A

PATIENT
  Age: 59 Year
  Sex: Female

DRUGS (5)
  1. LAMICTAL [Suspect]
     Dosage: 150MG TWICE PER DAY
     Route: 048
  2. CLONIDINE [Concomitant]
  3. NORVASC [Concomitant]
  4. SENOKOT [Concomitant]
  5. CRESTOR [Concomitant]

REACTIONS (1)
  - TREMOR [None]
